FAERS Safety Report 9752186 (Version 1)
Quarter: 2013Q4

REPORT INFORMATION
  Report Type: Spontaneous
  Country: US (occurrence: None)
  Receive Date: 20131211
  Receipt Date: 20131211
  Transmission Date: 20140711
  Serious: No
  Sender: FDA-Public Use
  Company Number: None

PATIENT
  Age: 54 Year
  Sex: Female

DRUGS (6)
  1. SUMATRIPTAN [Suspect]
     Indication: MIGRAINE
     Dosage: SUMATRIPTAN 100MG ONE PRN HA  P.O.
     Route: 048
     Dates: start: 20130619
  2. TOPIRAMATE [Concomitant]
  3. BUPROPION HCL [Concomitant]
  4. VIVELLE DOT [Concomitant]
  5. LIOTHYRONINE [Concomitant]
  6. LEVOTHYROXINE [Concomitant]

REACTIONS (3)
  - Product substitution issue [None]
  - Therapeutic response unexpected with drug substitution [None]
  - Drug ineffective [None]
